FAERS Safety Report 5228958-1 (Version None)
Quarter: 2007Q1

REPORT INFORMATION
  Report Type: 
  Country: None (occurrence: None)
  Receive Date: 20061201
  Receipt Date: 20061005
  Transmission Date: 20070707
  Serious: No
  Sender: FDA-Public Use
  Company Number: US200610001238

PATIENT
  Age: 60 Year
  Sex: Female

DRUGS (3)
  1. CYMBALTA [Suspect]
     Indication: MYALGIA
     Dosage: SEE IMAGE
     Dates: start: 20050101, end: 20061002
  2. DDAVP [Concomitant]
  3. ULTRAM [Concomitant]

REACTIONS (6)
  - FATIGUE [None]
  - HEADACHE [None]
  - NARCOLEPSY [None]
  - NIGHTMARE [None]
  - POLYMYOSITIS [None]
  - SEDATION [None]
